FAERS Safety Report 9524960 (Version 1)
Quarter: 2013Q3

REPORT INFORMATION
  Report Type: Spontaneous
  Country: US (occurrence: None)
  Receive Date: 20130912
  Receipt Date: 20130912
  Transmission Date: 20140515
  Serious: No
  Sender: FDA-Public Use
  Company Number: None

PATIENT
  Age: 57 Year
  Sex: Female
  Weight: 51.71 kg

DRUGS (1)
  1. BIOTENE [Suspect]
     Indication: DRY MOUTH
     Dosage: TABLESPOON AS NEEDED.
     Dates: start: 20130905

REACTIONS (9)
  - Expired drug administered [None]
  - Thermal burn [None]
  - Chemical burn of gastrointestinal tract [None]
  - Pain [None]
  - Dry mouth [None]
  - Lip dry [None]
  - Speech disorder [None]
  - Lip pain [None]
  - Skin discolouration [None]
